FAERS Safety Report 19452107 (Version 1)
Quarter: 2021Q2

REPORT INFORMATION
  Report Type: Spontaneous
  Country: RO (occurrence: RO)
  Receive Date: 20210623
  Receipt Date: 20210623
  Transmission Date: 20210717
  Serious: Yes (Other)
  Sender: FDA-Public Use
  Company Number: NVSC2021RO131725

PATIENT
  Age: 56 Year
  Sex: Male

DRUGS (2)
  1. TAMSULOSIN [Suspect]
     Active Substance: TAMSULOSIN
     Indication: LOWER URINARY TRACT SYMPTOMS
     Dosage: UNK (UNKNOWN FREQ)
     Route: 065
  2. DUTASTERIDA [Suspect]
     Active Substance: DUTASTERIDE
     Indication: LOWER URINARY TRACT SYMPTOMS
     Dosage: UNK (UNKNOWN FREQ)
     Route: 065

REACTIONS (2)
  - Erectile dysfunction [Unknown]
  - Micturition urgency [Unknown]

NARRATIVE: CASE EVENT DATE: 201901
